FAERS Safety Report 5553635-7 (Version None)
Quarter: 2007Q4

REPORT INFORMATION
  Report Type: 
  Country: None (occurrence: None)
  Receive Date: 20071213
  Receipt Date: 20071204
  Transmission Date: 20080405
  Serious: Yes (Hospitalization)
  Sender: FDA-Public Use
  Company Number: PHBS2007US20465

PATIENT
  Age: 48 Year
  Sex: Male

DRUGS (3)
  1. CYCLOSPORINE [Suspect]
     Indication: RENAL TRANSPLANT
     Dosage: 8 MG/KG/D
     Route: 065
  2. MYCOPHENOLATE MOFETIL [Suspect]
     Indication: RENAL TRANSPLANT
     Dosage: 750 MG/D
     Route: 065
  3. PREDNISOLONE [Suspect]
     Indication: RENAL TRANSPLANT
     Dosage: 60 MG/D
     Route: 065

REACTIONS (11)
  - ANAEMIA [None]
  - CYTOMEGALOVIRUS INFECTION [None]
  - CYTOMEGALOVIRUS TEST POSITIVE [None]
  - GUILLAIN-BARRE SYNDROME [None]
  - HAEMOGLOBIN DECREASED [None]
  - HYPOAESTHESIA [None]
  - MUSCULAR WEAKNESS [None]
  - NERVE CONDUCTION STUDIES ABNORMAL [None]
  - PARAESTHESIA [None]
  - PYREXIA [None]
  - SENSORY LOSS [None]
